FAERS Safety Report 5122426-3 (Version None)
Quarter: 2006Q4

REPORT INFORMATION
  Report Type: 
  Country: None (occurrence: None)
  Receive Date: 20061004
  Receipt Date: 20060919
  Transmission Date: 20070319
  Serious: Yes (Other)
  Sender: FDA-Public Use
  Company Number: 2006SP003359

PATIENT
  Age: 35 Year
  Sex: Female
  Weight: 67.1324 kg

DRUGS (3)
  1. LUNESTA [Suspect]
     Indication: INSOMNIA
     Dosage: 3 MG; 1X; ORAL
     Route: 048
     Dates: start: 20060601, end: 20060601
  2. DEPAKOTE [Concomitant]
  3. ORAL CONTRACEPTIVE NOS [Concomitant]

REACTIONS (2)
  - CONDITION AGGRAVATED [None]
  - PETIT MAL EPILEPSY [None]
